FAERS Safety Report 11688540 (Version 1)
Quarter: 2015Q4

REPORT INFORMATION
  Report Type: Spontaneous
  Country: US (occurrence: US)
  Receive Date: 20151101
  Receipt Date: 20151101
  Transmission Date: 20160304
  Serious: Yes (Hospitalization, Other)
  Sender: FDA-Public Use
  Company Number: US-ZYDUS-009336

PATIENT
  Age: 36 Year
  Sex: Male

DRUGS (1)
  1. LAMOTRIGINE. [Suspect]
     Active Substance: LAMOTRIGINE
     Indication: PRODUCT USED FOR UNKNOWN INDICATION
     Dosage: ESTIMATED AMOUNT INGESTED AS UP TO 13.5 G (90 TABLETS OF 150 MG)
     Route: 048

REACTIONS (6)
  - Generalised tonic-clonic seizure [Unknown]
  - Conduction disorder [Recovered/Resolved]
  - Myopathy [Unknown]
  - Quadriplegia [Unknown]
  - Overdose [Unknown]
  - Status epilepticus [Unknown]
